FAERS Safety Report 5620539-0 (Version None)
Quarter: 2008Q1

REPORT INFORMATION
  Report Type: 
  Country: None (occurrence: None)
  Receive Date: 20080208
  Receipt Date: 20080129
  Transmission Date: 20080703
  Serious: Yes (Other)
  Sender: FDA-Public Use
  Company Number: PHBS2008CN00962

PATIENT
  Age: 20 Year
  Sex: Male

DRUGS (4)
  1. SEBIVO [Suspect]
     Indication: HEPATITIS
     Dosage: UNK, UNK
     Route: 048
     Dates: start: 20070720, end: 20080110
  2. INTERFERON [Concomitant]
     Dosage: UNK, UNK
     Dates: start: 20070730, end: 20070817
  3. PEGINTRON ^ESSEX CHEMIE^ [Concomitant]
     Dates: start: 20070817
  4. ADEFOVIR DIPIVOXIL KIT [Concomitant]

REACTIONS (4)
  - ARTHRALGIA [None]
  - BLOOD CREATINE PHOSPHOKINASE INCREASED [None]
  - HYPOAESTHESIA [None]
  - PAIN IN EXTREMITY [None]
